FAERS Safety Report 23617697 (Version 1)
Quarter: 2024Q1

REPORT INFORMATION
  Report Type: Spontaneous
  Country: US (occurrence: US)
  Receive Date: 20240311
  Receipt Date: 20240311
  Transmission Date: 20240410
  Serious: No
  Sender: FDA-Public Use
  Company Number: US-SANOFI-01972117

PATIENT
  Sex: Female

DRUGS (2)
  1. SARCLISA [Suspect]
     Active Substance: ISATUXIMAB\ISATUXIMAB-IRFC
     Indication: Plasma cell myeloma
     Dosage: UNK
  2. VENCLEXTA [Concomitant]
     Active Substance: VENETOCLAX
     Dosage: UNK

REACTIONS (2)
  - Breast mass [Unknown]
  - Light chain analysis increased [Unknown]
